FAERS Safety Report 5376320-3 (Version None)
Quarter: 2007Q3

REPORT INFORMATION
  Report Type: 
  Country: None (occurrence: None)
  Receive Date: 20070702
  Receipt Date: 20070628
  Transmission Date: 20080115
  Serious: Yes (Death, Hospitalization)
  Sender: FDA-Public Use
  Company Number: US-ASTRAZENECA-2007UW00341

PATIENT
  Age: 87 Year
  Sex: Female

DRUGS (2)
  1. SEROQUEL [Suspect]
     Route: 048
     Dates: start: 20050214
  2. FLUCONAZOLE [Concomitant]
     Route: 048

REACTIONS (2)
  - COUGH [None]
  - PULMONARY OEDEMA [None]
